FAERS Safety Report 8221703-7 (Version None)
Quarter: 2012Q1

REPORT INFORMATION
  Report Type: 
  Country: None (occurrence: None)
  Receive Date: 20120316
  Receipt Date: 20120302
  Transmission Date: 20120608
  Serious: Yes (Death, Life-Threatening, Other)
  Sender: FDA-Public Use
  Company Number: US-2011-10043

PATIENT
  Age: 68 Year
  Sex: Male

DRUGS (26)
  1. CYCLOPHOSPHAMIDE [Concomitant]
  2. SIMVASTATIN [Concomitant]
  3. ZOCOR [Concomitant]
  4. CEFEPIME (CEFEPIME HYDROCHLORIDE) [Concomitant]
  5. PROMETHEZINE HCL [Concomitant]
  6. ALLOPURINOL [Concomitant]
  7. DOCUSATE CALCIUM (DOCUSATE CALCIUM) [Concomitant]
  8. OMEPRAZOLE [Concomitant]
  9. FUROSEMIDE [Concomitant]
  10. TRIMETHOPRIM [Concomitant]
  11. OXYCODONE HCL [Concomitant]
  12. DEXAMETHASONE [Concomitant]
  13. AMLODIPINE [Concomitant]
  14. ONDANSETRON [Concomitant]
  15. TRAZODONE HCL [Concomitant]
  16. CITALOPRAM HYDROBROMIDE [Concomitant]
  17. LORAZEPAM [Concomitant]
  18. KEPPRA [Concomitant]
  19. URSODIOL (URSODEOXYCHLOLIC ACID) [Concomitant]
  20. SENNA ALEXANDRIA EXTRACT W/DOCUSATE SODIUM (DOSCUSATE SODIUM, SENNOSID [Concomitant]
  21. NACL (NACL) [Concomitant]
  22. BUSULFAN [Suspect]
     Indication: LYMPHOMA
     Dosage: 73.6 MG MILLIGRAM(S), DAILY DOSE, INTRAVENOUS 298 MG MILLIGRAM(S), DAILY DOSE, INTRAVENOUS
     Route: 042
     Dates: start: 20110112, end: 20110112
  23. ETOPOSIDE [Concomitant]
  24. ADVAIR HFA [Concomitant]
  25. BENADRYL [Concomitant]
  26. IBUPROFEN [Concomitant]

REACTIONS (17)
  - DIARRHOEA [None]
  - VENTRICULAR EXTRASYSTOLES [None]
  - PULMONARY EMBOLISM [None]
  - CARDIO-RESPIRATORY ARREST [None]
  - APNOEA [None]
  - HEPATOSPLENOMEGALY [None]
  - HYPOALBUMINAEMIA [None]
  - PULSELESS ELECTRICAL ACTIVITY [None]
  - THROMBOCYTOPENIA [None]
  - DELIRIUM [None]
  - PULSE ABSENT [None]
  - CARDIOMEGALY [None]
  - PSYCHOTIC DISORDER [None]
  - MENTAL STATUS CHANGES [None]
  - NEUTROPENIA [None]
  - SUDDEN CARDIAC DEATH [None]
  - ANAEMIA [None]
